FAERS Safety Report 19486141 (Version 3)
Quarter: 2022Q3

REPORT INFORMATION
  Report Type: Report from Study
  Country: US (occurrence: US)
  Receive Date: 20210702
  Receipt Date: 20220808
  Transmission Date: 20221027
  Serious: No
  Sender: FDA-Public Use
  Company Number: US-KYOWAKIRIN-2021BKK011358

PATIENT

DRUGS (3)
  1. CRYSVITA [Suspect]
     Active Substance: BUROSUMAB-TWZA
     Indication: Hereditary hypophosphataemic rickets
     Dosage: 30 MG, 1X/2 WEEKS
     Route: 058
  2. CRYSVITA [Suspect]
     Active Substance: BUROSUMAB-TWZA
     Dosage: INJECT 2 ML (40 MG) UNDER THE SKIN
     Route: 058
  3. CRYSVITA [Suspect]
     Active Substance: BUROSUMAB-TWZA
     Indication: Hereditary hypophosphataemic rickets
     Dosage: 40 MG, 1X/2 WEEKS(2ML),UNDER THE SKIN
     Route: 058

REACTIONS (6)
  - Nasal congestion [Unknown]
  - Oropharyngeal pain [Unknown]
  - Fall [Unknown]
  - Middle insomnia [Unknown]
  - Diarrhoea [Unknown]
  - Sacral pain [Unknown]
